FAERS Safety Report 13737053 (Version 5)
Quarter: 2017Q3

REPORT INFORMATION
  Report Type: Spontaneous
  Country: ZA (occurrence: ZA)
  Receive Date: 20170710
  Receipt Date: 20170728
  Transmission Date: 20171127
  Serious: Yes (Hospitalization)
  Sender: FDA-Public Use
  Company Number: ZA-JNJFOC-20170703431

PATIENT
  Sex: Female
  Weight: 50 kg

DRUGS (14)
  1. STILPANE [Concomitant]
     Indication: ANALGESIC THERAPY
     Dosage: 3-DAY
     Route: 065
  2. ARAVA [Concomitant]
     Active Substance: LEFLUNOMIDE
     Route: 065
  3. OMEZ [Suspect]
     Active Substance: OMEPRAZOLE
     Indication: GASTROOESOPHAGEAL REFLUX DISEASE
     Route: 048
     Dates: end: 20170629
  4. IMURAN [Concomitant]
     Active Substance: AZATHIOPRINE
     Route: 065
  5. METHOTREXATE. [Concomitant]
     Active Substance: METHOTREXATE
     Route: 065
     Dates: start: 2007
  6. ELTROXIN [Concomitant]
     Active Substance: LEVOTHYROXINE
     Indication: HYPOTHYROIDISM
     Route: 065
  7. ENDOXAN [Concomitant]
     Active Substance: CYCLOPHOSPHAMIDE
     Route: 065
  8. CYCLOSPORIN A [Concomitant]
     Active Substance: CYCLOSPORINE
     Route: 065
     Dates: start: 2007
  9. INDAPAMIDE. [Concomitant]
     Active Substance: INDAPAMIDE
     Indication: HYPERTENSION
     Route: 065
  10. SIMPONI [Suspect]
     Active Substance: GOLIMUMAB
     Indication: PSORIATIC ARTHROPATHY
     Route: 058
     Dates: start: 20170606
  11. LOSARTAN. [Suspect]
     Active Substance: LOSARTAN
     Indication: HYPERTENSION
     Route: 048
     Dates: end: 20170629
  12. ARCOXIA [Suspect]
     Active Substance: ETORICOXIB
     Indication: PSORIATIC ARTHROPATHY
     Route: 048
     Dates: end: 20170629
  13. LEFLUNOMIDE. [Concomitant]
     Active Substance: LEFLUNOMIDE
     Route: 065
     Dates: start: 2007
  14. CALCITROL [Concomitant]
     Active Substance: CALCITRIOL
     Indication: OSTEOPOROSIS
     Dosage: 50,000WEEK
     Route: 042

REACTIONS (4)
  - Pruritus generalised [Unknown]
  - Urinary tract infection [Unknown]
  - Tubulointerstitial nephritis [Not Recovered/Not Resolved]
  - Cholelithiasis [Unknown]

NARRATIVE: CASE EVENT DATE: 2017
